FAERS Safety Report 24279039 (Version 2)
Quarter: 2024Q3

REPORT INFORMATION
  Report Type: Spontaneous
  Country: US (occurrence: US)
  Receive Date: 20240903
  Receipt Date: 20240918
  Transmission Date: 20241016
  Serious: Yes (Other)
  Sender: PERRIGO
  Company Number: US-MLMSERVICE-20240821-PI166710-00211-2

PATIENT
  Age: 59 Year
  Sex: Male
  Weight: 81 kg

DRUGS (3)
  1. NICOTINE POLACRILEX [Suspect]
     Active Substance: NICOTINE
     Indication: Ex-tobacco user
     Dosage: OVER-THE-COUNTER SUGAR-FREE APPROXIMATLY 12 DOSES A DAY
     Route: 048
     Dates: start: 200805
  2. MANNITOL [Suspect]
     Active Substance: MANNITOL
     Indication: Ex-tobacco user
     Dosage: OVER-THE-COUNTER SUGAR-FREE APPROXIMATLY 12 DOSES A DAY
     Route: 048
     Dates: start: 200805
  3. MALTODEXTRIN [Suspect]
     Active Substance: MALTODEXTRIN
     Indication: Ex-tobacco user
     Dosage: OVER-THE-COUNTER SUGAR-FREE APPROXIMATLY 12 DOSES A DAY
     Route: 048
     Dates: start: 200805

REACTIONS (2)
  - Dental caries [Recovering/Resolving]
  - Nicotine dependence [Unknown]

NARRATIVE: CASE EVENT DATE: 20080101
